FAERS Safety Report 15162820 (Version 1)
Quarter: 2018Q3

REPORT INFORMATION
  Report Type: Report from Study
  Country: US (occurrence: US)
  Receive Date: 20180718
  Receipt Date: 20180718
  Transmission Date: 20181010
  Serious: No
  Sender: FDA-Public Use
  Company Number: US-AMGEN-USASP2014020667

PATIENT
  Age: 57 Year
  Sex: Female
  Weight: 158 kg

DRUGS (7)
  1. PREDNISONE. [Concomitant]
     Active Substance: PREDNISONE
     Dosage: 5 MG, UNK
  2. VITAMIN D                          /00107901/ [Concomitant]
     Active Substance: ERGOCALCIFEROL
     Dosage: 1000 UNIT, UNK
  3. CELEBREX [Concomitant]
     Active Substance: CELECOXIB
     Dosage: 100 MG, UNK
  4. ENBREL [Suspect]
     Active Substance: ETANERCEPT
     Indication: PRODUCT USED FOR UNKNOWN INDICATION
     Dosage: 50 MG, QWK
     Route: 058
  5. METOPROLOL TARTRATE. [Concomitant]
     Active Substance: METOPROLOL TARTRATE
     Dosage: 50 MG, UNK
  6. CALCIUM [Concomitant]
     Active Substance: CALCIUM
     Dosage: 600 UNK, UNK
  7. TYLENOL [Concomitant]
     Active Substance: ACETAMINOPHEN
     Dosage: 325 MG, UNK

REACTIONS (2)
  - Injection site erythema [Unknown]
  - Injection site warmth [Unknown]

NARRATIVE: CASE EVENT DATE: 20140227
